FAERS Safety Report 7283973-1 (Version None)
Quarter: 2011Q1

REPORT INFORMATION
  Report Type: 
  Country: None (occurrence: None)
  Receive Date: 20110209
  Receipt Date: 20110204
  Transmission Date: 20110831
  Serious: Yes (Hospitalization)
  Sender: FDA-Public Use
  Company Number: IE-GILEAD-IE-CVT-100622

PATIENT
  Sex: Female

DRUGS (5)
  1. IRBESARTAN AND HYDROCHLOROTHIAZIDE [Suspect]
     Indication: PRODUCT USED FOR UNKNOWN INDICATION
  2. BISOPROLOL FUMARATE [Concomitant]
  3. RANEXA [Suspect]
     Indication: PRODUCT USED FOR UNKNOWN INDICATION
     Route: 048
     Dates: start: 20100501
  4. OMEPRAZOLE [Concomitant]
  5. NICORANDIL [Concomitant]

REACTIONS (1)
  - HYPONATRAEMIA [None]
